FAERS Safety Report 12231773 (Version 2)
Quarter: 2016Q2

REPORT INFORMATION
  Report Type: Report from Study
  Country: IT (occurrence: IT)
  Receive Date: 20160401
  Receipt Date: 20160413
  Transmission Date: 20160815
  Serious: Yes (Other)
  Sender: FDA-Public Use
  Company Number: IT-BRISTOL-MYERS SQUIBB COMPANY-BMS-2015-060224

PATIENT
  Age: 71 Year
  Sex: Female
  Weight: 61 kg

DRUGS (12)
  1. NIVOLUMAB [Suspect]
     Active Substance: NIVOLUMAB
     Dosage: UNK
     Route: 065
     Dates: start: 20151211, end: 20151211
  2. METOCLOPRAMIDE. [Concomitant]
     Active Substance: METOCLOPRAMIDE
     Indication: PRODUCT USED FOR UNKNOWN INDICATION
     Dosage: 30 MG, UNK
     Route: 065
     Dates: end: 20150928
  3. SULFAMETHOXAZOLE AND TRIMETHOPRIM [Concomitant]
     Active Substance: SULFAMETHOXAZOLE\TRIMETHOPRIM
     Indication: PRODUCT USED FOR UNKNOWN INDICATION
     Dosage: 1 DF, UNK
     Route: 065
     Dates: start: 20151123
  4. BECLOMETHASONE                     /00212602/ [Concomitant]
     Active Substance: BECLOMETHASONE
     Indication: PRODUCT USED FOR UNKNOWN INDICATION
     Dosage: UNK
     Route: 065
     Dates: start: 20160311, end: 20160317
  5. LEVOSULPRIDE [Concomitant]
     Active Substance: LEVOSULPIRIDE
     Indication: PRODUCT USED FOR UNKNOWN INDICATION
     Dosage: 60 GTT, UNK
     Route: 048
     Dates: start: 20150928
  6. NIVOLUMAB [Suspect]
     Active Substance: NIVOLUMAB
     Dosage: UNK
     Route: 065
     Dates: start: 20151126, end: 20151126
  7. NIVOLUMAB [Suspect]
     Active Substance: NIVOLUMAB
     Dosage: UNK
     Route: 065
     Dates: start: 20160129, end: 20160129
  8. NIVOLUMAB [Suspect]
     Active Substance: NIVOLUMAB
     Dosage: UNK
     Route: 065
     Dates: start: 20160212
  9. LEVOFLOXACINE                      /01278901/ [Concomitant]
     Active Substance: LEVOFLOXACIN
     Indication: PRODUCT USED FOR UNKNOWN INDICATION
     Dosage: 1 DF, UNK
     Route: 065
     Dates: start: 20151030
  10. NIVOLUMAB [Suspect]
     Active Substance: NIVOLUMAB
     Dosage: UNK
     Route: 065
     Dates: start: 20151228, end: 20151228
  11. NIVOLUMAB [Suspect]
     Active Substance: NIVOLUMAB
     Indication: NON-SMALL CELL LUNG CANCER
     Dosage: 3 MG/KG, Q2WK
     Route: 042
     Dates: start: 20151014, end: 20151014
  12. NIVOLUMAB [Suspect]
     Active Substance: NIVOLUMAB
     Dosage: UNK
     Route: 065
     Dates: start: 20160111, end: 20160111

REACTIONS (17)
  - Vomiting [Unknown]
  - Decreased appetite [Unknown]
  - Cholestasis [Unknown]
  - Mobility decreased [Unknown]
  - Paraesthesia [Unknown]
  - Breath sounds [Unknown]
  - Back pain [Unknown]
  - Asthenia [Unknown]
  - Cough [Unknown]
  - Diarrhoea [Recovered/Resolved]
  - Pyrexia [Unknown]
  - Laboratory test abnormal [Unknown]
  - Blood test abnormal [Unknown]
  - Spinal fracture [Unknown]
  - Dyspnoea [Unknown]
  - Nausea [Unknown]
  - Constipation [Unknown]

NARRATIVE: CASE EVENT DATE: 20151024
